FAERS Safety Report 4699412-0 (Version None)
Quarter: 2005Q2

REPORT INFORMATION
  Report Type: 
  Country: None (occurrence: None)
  Receive Date: 20050624
  Receipt Date: 20050309
  Transmission Date: 20051028
  Serious: Yes (Hospitalization, Other)
  Sender: FDA-Public Use
  Company Number: US-MERCK-0503USA01996

PATIENT
  Age: 58 Year
  Sex: Male
  Weight: 80 kg

DRUGS (4)
  1. VIOXX [Suspect]
     Indication: ARTHRITIS
     Route: 048
     Dates: start: 19991211, end: 20040901
  2. ALLEGRA [Concomitant]
     Route: 065
  3. WELLBUTRIN [Concomitant]
     Indication: DEPRESSION
     Route: 065
  4. PRAVACHOL [Concomitant]
     Route: 065

REACTIONS (30)
  - ALANINE AMINOTRANSFERASE INCREASED [None]
  - ANXIETY [None]
  - ATRIAL FIBRILLATION [None]
  - ATRIOVENTRICULAR BLOCK FIRST DEGREE [None]
  - BACK PAIN [None]
  - BASAL CELL CARCINOMA [None]
  - BLINDNESS [None]
  - BLINDNESS TRANSIENT [None]
  - BLOOD CHOLESTEROL INCREASED [None]
  - BLOOD GLUCOSE INCREASED [None]
  - BRADYCARDIA [None]
  - CORONARY ARTERY DISEASE [None]
  - DIZZINESS [None]
  - DRUG INEFFECTIVE [None]
  - DRUG INTOLERANCE [None]
  - DYSPHONIA [None]
  - EPIGASTRIC DISCOMFORT [None]
  - GASTRITIS [None]
  - GASTROOESOPHAGEAL REFLUX DISEASE [None]
  - HEADACHE [None]
  - HYPERLIPIDAEMIA [None]
  - MYOCARDIAL INFARCTION [None]
  - NIPPLE PAIN [None]
  - PLEURISY [None]
  - SALIVARY HYPERSECRETION [None]
  - SUPRAVENTRICULAR TACHYCARDIA [None]
  - TENDON RUPTURE [None]
  - THROMBOSIS [None]
  - TINNITUS [None]
  - TREMOR [None]
